FAERS Safety Report 4559985-5 (Version None)
Quarter: 2005Q1

REPORT INFORMATION
  Report Type: 
  Country: None (occurrence: None)
  Receive Date: 20050120
  Receipt Date: 20050120
  Transmission Date: 20050727
  Serious: Yes (Other)
  Sender: FDA-Public Use
  Company Number: None

PATIENT
  Age: 65 Year
  Sex: Female
  Weight: 91.173 kg

DRUGS (3)
  1. GLUCOPHAGE [Suspect]
     Indication: DIABETES MELLITUS
     Dosage: 12-22-04  PO
     Route: 048
     Dates: start: 20040129
  2. FOSAMAX [Concomitant]
  3. ZYRTEC [Concomitant]

REACTIONS (1)
  - DRUG HYPERSENSITIVITY [None]
